FAERS Safety Report 17031709 (Version 1)
Quarter: 2019Q4

REPORT INFORMATION
  Report Type: Spontaneous
  Country: GB (occurrence: GB)
  Receive Date: 20191114
  Receipt Date: 20191114
  Transmission Date: 20200122
  Serious: Yes (Life-Threatening)
  Sender: FDA-Public Use
  Company Number: GB-BIO PRODUCTS LABORATORY LTD-2076845

PATIENT
  Age: 9 Year
  Sex: Male

DRUGS (11)
  1. MESALAZINE [Concomitant]
     Active Substance: MESALAMINE
  2. LIPOSOMAL AMPHOTERICIN [Concomitant]
     Active Substance: AMPHOTERICIN B
  3. TREOSULFAN [Concomitant]
     Active Substance: TREOSULFAN
  4. CYCLOSPORINE. [Concomitant]
     Active Substance: CYCLOSPORINE
  5. FOSCARNET [Concomitant]
     Active Substance: FOSCARNET
  6. GENERIC IVIG [Suspect]
     Active Substance: HUMAN IMMUNOGLOBULIN G
     Indication: ANTIBIOTIC PROPHYLAXIS
     Route: 042
  7. AZATHIOPRINE. [Concomitant]
     Active Substance: AZATHIOPRINE
  8. COTRIMOXAZOLE [Concomitant]
     Active Substance: SULFAMETHOXAZOLE\TRIMETHOPRIM
  9. MYCOPHENOLATE MOFETIL. [Concomitant]
     Active Substance: MYCOPHENOLATE MOFETIL
  10. GENERIC IVIG [Suspect]
     Active Substance: HUMAN IMMUNOGLOBULIN G
     Indication: IMMUNE THROMBOCYTOPENIC PURPURA
     Route: 042
  11. RITUXIMAB. [Concomitant]
     Active Substance: RITUXIMAB

REACTIONS (4)
  - Haemorrhage intracranial [Unknown]
  - Transplant rejection [Unknown]
  - Drug ineffective [Unknown]
  - Off label use [Unknown]
